FAERS Safety Report 5573621-0 (Version None)
Quarter: 2007Q4

REPORT INFORMATION
  Report Type: 
  Country: None (occurrence: None)
  Receive Date: 20071226
  Receipt Date: 20071218
  Transmission Date: 20080405
  Serious: Yes (Other)
  Sender: FDA-Public Use
  Company Number: US-ELI_LILLY_AND_COMPANY-US200712003955

PATIENT
  Age: 63 Year
  Sex: Female

DRUGS (2)
  1. BYETTA [Suspect]
     Indication: HYPERGLYCAEMIA
  2. LANTUS [Concomitant]
     Indication: HYPERGLYCAEMIA

REACTIONS (4)
  - HYPOGLYCAEMIA [None]
  - NAUSEA [None]
  - PANCREATITIS [None]
  - VOMITING [None]
